FAERS Safety Report 8608769-7 (Version None)
Quarter: 2012Q3

REPORT INFORMATION
  Report Type: 
  Country: None (occurrence: None)
  Receive Date: 20120809
  Receipt Date: 20120809
  Transmission Date: 20120928
  Serious: Yes (Hospitalization)
  Sender: FDA-Public Use
  Company Number: None

PATIENT
  Age: 94 Year
  Sex: Female
  Weight: 76.2 kg

DRUGS (1)
  1. RECLAST [Suspect]

REACTIONS (3)
  - FALL [None]
  - STRESS FRACTURE [None]
  - FEMUR FRACTURE [None]
